FAERS Safety Report 6968243-0 (Version None)
Quarter: 2010Q3

REPORT INFORMATION
  Report Type: 
  Country: None (occurrence: None)
  Receive Date: 20100907
  Receipt Date: 20100826
  Transmission Date: 20110219
  Serious: No
  Sender: FDA-Public Use
  Company Number: JP-JNJFOC-20100900970

PATIENT

DRUGS (2)
  1. DUROTEP MT [Suspect]
     Indication: PAIN
     Dosage: 3 PATCHES IN WHICH 1 WOULD BE REPLACED WITH A NEW PATCH EVERY 24 HOURS
     Route: 062
  2. DUROTEP MT [Suspect]
     Route: 062

REACTIONS (3)
  - DRUG PRESCRIBING ERROR [None]
  - INAPPROPRIATE SCHEDULE OF DRUG ADMINISTRATION [None]
  - NAUSEA [None]
